FAERS Safety Report 19786329 (Version 1)
Quarter: 2021Q3

REPORT INFORMATION
  Report Type: Report from Study
  Country: US (occurrence: US)
  Receive Date: 20210903
  Receipt Date: 20210903
  Transmission Date: 20211014
  Serious: Yes (Death, Hospitalization)
  Sender: FDA-Public Use
  Company Number: US-BAYER-2021-195623

PATIENT
  Age: 66 Year
  Sex: Female
  Weight: 87.98 kg

DRUGS (6)
  1. ELIQUIS [Concomitant]
     Active Substance: APIXABAN
  2. ESBRIET [Concomitant]
     Active Substance: PIRFENIDONE
  3. ADEMPAS [Suspect]
     Active Substance: RIOCIGUAT
     Indication: PULMONARY ARTERIAL HYPERTENSION
     Dosage: UNK
     Route: 048
     Dates: start: 20210311
  4. ADEMPAS [Suspect]
     Active Substance: RIOCIGUAT
     Indication: PULMONARY ARTERIAL HYPERTENSION
     Dosage: 1.5 MG, TID
     Route: 048
  5. UPTRAVI [Concomitant]
     Active Substance: SELEXIPAG
  6. OPSUMIT [Concomitant]
     Active Substance: MACITENTAN

REACTIONS (3)
  - Pneumonia [None]
  - Pulmonary oedema [None]
  - Death [Fatal]

NARRATIVE: CASE EVENT DATE: 20210726
